FAERS Safety Report 7426149-7 (Version None)
Quarter: 2011Q2

REPORT INFORMATION
  Report Type: 
  Country: None (occurrence: None)
  Receive Date: 20110420
  Receipt Date: 20110407
  Transmission Date: 20111010
  Serious: Yes (Other)
  Sender: FDA-Public Use
  Company Number: US-JNJFOC-20110403620

PATIENT
  Age: 4 Decade
  Sex: Female

DRUGS (4)
  1. REMICADE [Suspect]
     Dosage: 400 MG
     Route: 042
  2. ACETAMINOPHEN [Concomitant]
     Indication: PREMEDICATION
  3. REMICADE [Suspect]
     Indication: CROHN'S DISEASE
     Dosage: 200 MG
     Route: 042
  4. BENADRYL [Concomitant]
     Indication: PREMEDICATION
     Route: 048

REACTIONS (5)
  - BACK PAIN [None]
  - TREMOR [None]
  - CHILLS [None]
  - INFECTION [None]
  - INFUSION RELATED REACTION [None]
